FAERS Safety Report 7611486-3 (Version None)
Quarter: 2011Q3

REPORT INFORMATION
  Report Type: 
  Country: None (occurrence: None)
  Receive Date: 20110715
  Receipt Date: 20110711
  Transmission Date: 20111222
  Serious: Yes (Other)
  Sender: FDA-Public Use
  Company Number: NL-PFIZER INC-2011155544

PATIENT
  Age: 28 Year
  Sex: Female

DRUGS (2)
  1. VARENICLINE TARTRATE [Suspect]
     Indication: SMOKING CESSATION THERAPY
     Dosage: UNK
     Dates: start: 20110701
  2. LEXAPRO [Concomitant]
     Dosage: 20 MG, UNK

REACTIONS (7)
  - FEELING ABNORMAL [None]
  - DYSGEUSIA [None]
  - DISTURBANCE IN ATTENTION [None]
  - APHASIA [None]
  - DYSPHEMIA [None]
  - DISSOCIATION [None]
  - MOOD SWINGS [None]
